FAERS Safety Report 23556040 (Version 3)
Quarter: 2024Q1

REPORT INFORMATION
  Report Type: Report from Study
  Country: US (occurrence: US)
  Receive Date: 20240222
  Receipt Date: 20240315
  Transmission Date: 20240410
  Serious: Yes (Hospitalization)
  Sender: FDA-Public Use
  Company Number: US-SANDOZ-SDZ2023US003972

PATIENT
  Sex: Female
  Weight: 86.168 kg

DRUGS (2)
  1. TREPROSTINIL [Suspect]
     Active Substance: TREPROSTINIL
     Dosage: 121 NG/KG/MIN, CONT
     Route: 042
     Dates: start: 20210608
  2. TREPROSTINIL [Suspect]
     Active Substance: TREPROSTINIL
     Indication: Pulmonary arterial hypertension
     Dosage: 121  NG/KG/M I N
     Route: 058
     Dates: start: 20210608

REACTIONS (6)
  - Fall [Unknown]
  - Tibia fracture [Unknown]
  - Ankle fracture [Unknown]
  - Fibula fracture [Unknown]
  - Injection site pain [Unknown]
  - Therapeutic response shortened [Recovered/Resolved]
